FAERS Safety Report 10023869 (Version 2)
Quarter: 2014Q1

REPORT INFORMATION
  Report Type: Spontaneous
  Country: US (occurrence: None)
  Receive Date: 20140318
  Receipt Date: 20140325
  Transmission Date: 20141002
  Serious: Yes (Other)
  Sender: FDA-Public Use
  Company Number: 2014-US-002949

PATIENT
  Age: 76 Year
  Sex: Male
  Weight: 87.1 kg

DRUGS (5)
  1. XYREM [Suspect]
     Indication: SLEEP DISORDER
     Route: 048
     Dates: start: 200307
  2. LUNESTA [Suspect]
     Indication: PRODUCT USED FOR UNKNOWN INDICATION
  3. AMBIEN [Suspect]
     Indication: SLEEP DISORDER
     Route: 048
  4. KLONOPIN [Suspect]
     Indication: SLEEP DISORDER
     Route: 048
  5. CRESTOR ( ROSUVASTATIN CALCIUM) [Concomitant]

REACTIONS (4)
  - Lymphoma [None]
  - Radiotherapy [None]
  - Amnesia [None]
  - Off label use [None]
